FAERS Safety Report 5776593-9 (Version None)
Quarter: 2008Q2

REPORT INFORMATION
  Report Type: 
  Country: None (occurrence: None)
  Receive Date: 20080601
  Receipt Date: 20080118
  Transmission Date: 20081010
  Serious: No
  Sender: FDA-Public Use
  Company Number: US200801003876

PATIENT
  Sex: Female

DRUGS (7)
  1. BYETTA [Suspect]
     Indication: TYPE 2 DIABETES MELLITUS
     Dosage: 5 UG, 2/D, SUBCUTANEOUS
     Route: 058
     Dates: start: 20080101
  2. LANTUS [Concomitant]
  3. LOVENOX [Concomitant]
  4. GLIMEPIRIDE [Concomitant]
  5. OXYCODONE HCL [Concomitant]
  6. AMIODARONE HCL [Concomitant]
  7. WARFARIN SODIUM [Concomitant]

REACTIONS (3)
  - BLOOD GLUCOSE INCREASED [None]
  - FATIGUE [None]
  - WRONG DRUG ADMINISTERED [None]
